FAERS Safety Report 4764203-9 (Version None)
Quarter: 2005Q3

REPORT INFORMATION
  Report Type: 
  Country: None (occurrence: None)
  Receive Date: 20050906
  Receipt Date: 20050610
  Transmission Date: 20060218
  Serious: No
  Sender: FDA-Public Use
  Company Number: 2005-BP-09947BP

PATIENT
  Age: 83 Year
  Sex: Female
  Weight: 61.6892 kg

DRUGS (4)
  1. SPIRIVA [Suspect]
     Indication: CHRONIC OBSTRUCTIVE PULMONARY DISEASE
     Dosage: 18 MCG (18 MCG, QD) , IH
     Route: 055
  2. ADVAIR DISKUS 100/50 [Concomitant]
  3. THEOPHYLLINE [Concomitant]
  4. LANOXIN [Concomitant]

REACTIONS (1)
  - HEART RATE INCREASED [None]
